FAERS Safety Report 4845412-7 (Version None)
Quarter: 2005Q4

REPORT INFORMATION
  Report Type: 
  Country: None (occurrence: None)
  Receive Date: 20051125
  Receipt Date: 20051116
  Transmission Date: 20060501
  Serious: Yes (Hospitalization)
  Sender: FDA-Public Use
  Company Number: 2005156817

PATIENT
  Age: 41 Year
  Sex: Female

DRUGS (7)
  1. NEURONTIN [Suspect]
     Indication: ILL-DEFINED DISORDER
     Dosage: 800 MG (400 MG, 1 D), ORAL
     Route: 048
     Dates: start: 20050929
  2. SOLU-MEDROL [Suspect]
     Indication: ILL-DEFINED DISORDER
     Dosage: ORAL
     Route: 048
     Dates: start: 20050924, end: 20050928
  3. PARACETAMOL (PARACETAMOL) [Suspect]
     Indication: ILL-DEFINED DISORDER
     Dosage: INTRAVENOUS
     Route: 042
     Dates: start: 20050924, end: 20050927
  4. CLARITHROMYCIN [Suspect]
     Indication: ILL-DEFINED DISORDER
     Dosage: 250 MG (250 ML, 1 IN 1 D), ORAL
     Route: 048
     Dates: start: 20050929
  5. INEXIUM (IESOMEPRAZOLE MAGNESIUM) [Suspect]
     Indication: ILL-DEFINED DISORDER
     Dosage: ORAL
     Route: 048
     Dates: start: 20050929
  6. PAMIDRONATE DISODIIUM (PAMIDRONATE DISODIUM) [Suspect]
     Indication: NEOPLASM MALIGNANT
     Dosage: 90 MG (1 D, INTRAVENOUS)
     Route: 042
     Dates: start: 20050929, end: 20050929
  7. POTASSIUM CHLORIDE [Concomitant]

REACTIONS (3)
  - BLOOD PRESSURE DECREASED [None]
  - PERIPHERAL COLDNESS [None]
  - SHOCK [None]
